FAERS Safety Report 9369951 (Version 1)
Quarter: 2013Q2

REPORT INFORMATION
  Report Type: Spontaneous
  Country: CO (occurrence: CO)
  Receive Date: 20130626
  Receipt Date: 20130626
  Transmission Date: 20140414
  Serious: No
  Sender: FDA-Public Use
  Company Number: CO-PFIZER INC-2013179699

PATIENT
  Age: 26 Year
  Sex: Male

DRUGS (2)
  1. MOTRIN [Suspect]
     Indication: ANALGESIC THERAPY
     Dosage: 600 MG, 2X/DAY
     Route: 048
     Dates: start: 20130311
  2. MOTRIN [Suspect]
     Indication: GINGIVECTOMY

REACTIONS (1)
  - Gingival bleeding [Recovered/Resolved with Sequelae]
